FAERS Safety Report 13013114 (Version 1)
Quarter: 2016Q4

REPORT INFORMATION
  Report Type: Spontaneous
  Country: US (occurrence: US)
  Receive Date: 20161209
  Receipt Date: 20161209
  Transmission Date: 20170207
  Serious: Yes (Other)
  Sender: FDA-Public Use
  Company Number: US-JNJFOC-20161203755

PATIENT
  Sex: Female

DRUGS (4)
  1. LEVAQUIN [Suspect]
     Active Substance: LEVOFLOXACIN
     Indication: PRODUCT USED FOR UNKNOWN INDICATION
     Route: 065
  2. PREDNISONE. [Concomitant]
     Active Substance: PREDNISONE
     Route: 065
  3. VORICONAZOLE. [Concomitant]
     Active Substance: VORICONAZOLE
     Route: 065
  4. DIFLUCAN [Concomitant]
     Active Substance: FLUCONAZOLE
     Route: 065

REACTIONS (5)
  - Coccidioidomycosis [Unknown]
  - Pneumonia [Unknown]
  - Cough [Unknown]
  - Nodule [Unknown]
  - Eosinophilia [Unknown]
